FAERS Safety Report 24169944 (Version 1)
Quarter: 2024Q3

REPORT INFORMATION
  Report Type: Spontaneous
  Country: US (occurrence: US)
  Receive Date: 20240803
  Receipt Date: 20240803
  Transmission Date: 20241017
  Serious: Yes (Other)
  Sender: JOHNSON AND JOHNSON
  Company Number: US-JNJFOC-20240776981

PATIENT
  Sex: Female

DRUGS (1)
  1. SPORANOX [Suspect]
     Active Substance: ITRACONAZOLE
     Indication: Systemic candida
     Route: 065

REACTIONS (2)
  - Drug-induced liver injury [Unknown]
  - Drug intolerance [Unknown]
